FAERS Safety Report 15122546 (Version 1)
Quarter: 2018Q3

REPORT INFORMATION
  Report Type: Spontaneous
  Country: MY (occurrence: MY)
  Receive Date: 20180709
  Receipt Date: 20180709
  Transmission Date: 20181010
  Serious: Yes (Other)
  Sender: FDA-Public Use
  Company Number: PHHY2018MY038439

PATIENT
  Age: 14 Month

DRUGS (1)
  1. CYCLOGYL [Suspect]
     Active Substance: CYCLOPENTOLATE HYDROCHLORIDE
     Indication: PUPIL DILATION PROCEDURE
     Route: 047

REACTIONS (2)
  - Generalised tonic-clonic seizure [Recovered/Resolved]
  - Erythema [Recovered/Resolved]
